FAERS Safety Report 6918166-8 (Version None)
Quarter: 2010Q3

REPORT INFORMATION
  Report Type: 
  Country: None (occurrence: None)
  Receive Date: 20100806
  Receipt Date: 20100413
  Transmission Date: 20110219
  Serious: Yes (Hospitalization, Other)
  Sender: FDA-Public Use
  Company Number: AUR-APL-2010-01069

PATIENT
  Age: 41 Year
  Sex: Male

DRUGS (15)
  1. SERTRALINE HYDROCHLORIDE [Suspect]
     Dosage: 50MG, DAILY, UNK
  2. AMLODIPINE [Suspect]
     Dosage: 5MG, DAILY, UNK
  3. CYCLOBENZAPRINE [Suspect]
     Dosage: 10MG - TID PRN-UNK
  4. MELOXICAM [Suspect]
     Dosage: 15MG-BID-UNK
  5. ALPRAZOLAM [Suspect]
     Dosage: 1MG-TID PRN- UNK
  6. FAMOTIDINE [Suspect]
     Dosage: 20MG-BID- UNK
  7. FENTANYL CITRATE [Suspect]
  8. LEVOFLOXACIN [Suspect]
  9. LINEZOLID [Suspect]
  10. MIDAZOLAM HCL [Suspect]
  11. MORPHINE [Suspect]
  12. OXYCODONE [Suspect]
     Dosage: 20MG-DAILY- UNK
  13. OXYCODONE AND ACETAMINOPHEN [Suspect]
     Dosage: UNK -Q4H PRN-UNK
  14. PIPERACILLIN AND TAZOBACTAM [Suspect]
  15. VENLAFAXINE HCL EXTENDED-RELEASE [Suspect]
     Dosage: 300MG-DAILY-UNK

REACTIONS (13)
  - AGITATION [None]
  - CHEST PAIN [None]
  - COUGH [None]
  - DELIRIUM [None]
  - DIALYSIS [None]
  - DRUG WITHDRAWAL SYNDROME [None]
  - DYSPNOEA [None]
  - METABOLIC ACIDOSIS [None]
  - PYREXIA [None]
  - RENAL IMPAIRMENT [None]
  - RESPIRATORY FAILURE [None]
  - SEROTONIN SYNDROME [None]
  - STAPHYLOCOCCAL BACTERAEMIA [None]
